FAERS Safety Report 25666888 (Version 1)
Quarter: 2025Q3

REPORT INFORMATION
  Report Type: Spontaneous
  Country: US (occurrence: US)
  Receive Date: 20250811
  Receipt Date: 20250811
  Transmission Date: 20251021
  Serious: No
  Sender: SANOFI AVENTIS
  Company Number: US-SA-2025SA232492

PATIENT
  Age: 64 Year
  Sex: Female

DRUGS (2)
  1. DUPIXENT [Suspect]
     Active Substance: DUPILUMAB
     Indication: Asthma
     Dosage: 200 MG, QOW
     Route: 058
     Dates: start: 20250602, end: 20250616
  2. KEVZARA [Concomitant]
     Active Substance: SARILUMAB

REACTIONS (2)
  - Pharyngeal swelling [Unknown]
  - Rash [Unknown]

NARRATIVE: CASE EVENT DATE: 20250601
